FAERS Safety Report 20439943 (Version 2)
Quarter: 2022Q1

REPORT INFORMATION
  Report Type: Spontaneous
  Country: PL (occurrence: PL)
  Receive Date: 20220207
  Receipt Date: 20220225
  Transmission Date: 20220424
  Serious: Yes (Other)
  Sender: FDA-Public Use
  Company Number: PL-NOVARTISPH-NVSC2022PL023260

PATIENT
  Age: 50 Year
  Sex: Male

DRUGS (3)
  1. ELTROMBOPAG OLAMINE [Suspect]
     Active Substance: ELTROMBOPAG OLAMINE
     Indication: Product used for unknown indication
     Dosage: 50 MG, QD
     Route: 065
     Dates: start: 20211116
  2. ELTROMBOPAG OLAMINE [Suspect]
     Active Substance: ELTROMBOPAG OLAMINE
     Dosage: 100 MG, QD
     Route: 065
  3. ELTROMBOPAG OLAMINE [Suspect]
     Active Substance: ELTROMBOPAG OLAMINE
     Dosage: 150 MG, QD
     Route: 065

REACTIONS (3)
  - Thrombocytopenia [Unknown]
  - Neutropenia [Unknown]
  - Off label use [Unknown]
